FAERS Safety Report 16433943 (Version 2)
Quarter: 2019Q2

REPORT INFORMATION
  Report Type: Spontaneous
  Country: IL (occurrence: IL)
  Receive Date: 20190614
  Receipt Date: 20190620
  Transmission Date: 20190711
  Serious: Yes (Other)
  Sender: FDA-Public Use
  Company Number: IL-PFIZER INC-2019252997

PATIENT
  Age: 61 Year
  Sex: Female

DRUGS (2)
  1. 5-ASA [Suspect]
     Active Substance: MESALAMINE
     Indication: COLITIS
     Dosage: 800 MG, 3X/DAY
  2. SULFASALAZINE. [Suspect]
     Active Substance: SULFASALAZINE
     Indication: COLITIS
     Dosage: UNK

REACTIONS (2)
  - Renal failure [Recovered/Resolved]
  - Nephrotic syndrome [Recovered/Resolved]
